FAERS Safety Report 14990074 (Version 1)
Quarter: 2018Q2

REPORT INFORMATION
  Report Type: Spontaneous
  Country: US (occurrence: US)
  Receive Date: 20180608
  Receipt Date: 20180608
  Transmission Date: 20180711
  Serious: No
  Sender: FDA-Public Use
  Company Number: US-ROCHE-2036025

PATIENT
  Sex: Female

DRUGS (2)
  1. ACTEMRA [Suspect]
     Active Substance: TOCILIZUMAB
     Indication: RHEUMATOID ARTHRITIS
     Dosage: FORM STRENGHT 162 MG/ 0.9 ML?1 SYRINGE EVERY 7 DAYS
     Route: 058
     Dates: start: 20171026
  2. NAPROXEN. [Concomitant]
     Active Substance: NAPROXEN
     Route: 065

REACTIONS (5)
  - Limb mass [Unknown]
  - Joint swelling [Unknown]
  - Fatigue [Unknown]
  - Acne [Unknown]
  - Myalgia [Unknown]
